FAERS Safety Report 4659609-2 (Version None)
Quarter: 2005Q2

REPORT INFORMATION
  Report Type: 
  Country: None (occurrence: None)
  Receive Date: 20050510
  Receipt Date: 20050422
  Transmission Date: 20051028
  Serious: Yes (Life-Threatening, Hospitalization)
  Sender: FDA-Public Use
  Company Number: 2005024545

PATIENT
  Age: 70 Year
  Sex: Male

DRUGS (2)
  1. PREGABALIN              (PREGABALIN) [Suspect]
     Indication: DIABETIC NEUROPATHY
     Dosage: 600 MG (200 MG, 3 IN 1 D), ORAL
     Route: 048
     Dates: start: 20000526, end: 20050312
  2. INSULIN [Concomitant]

REACTIONS (2)
  - HEPATIC NEOPLASM MALIGNANT NON-RESECTABLE [None]
  - RENAL FAILURE ACUTE [None]
